FAERS Safety Report 14589312 (Version 1)
Quarter: 2018Q1

REPORT INFORMATION
  Report Type: Report from Study
  Country: None (occurrence: IT)
  Receive Date: 20180301
  Receipt Date: 20180301
  Transmission Date: 20180509
  Serious: Yes (Death)
  Sender: FDA-Public Use
  Company Number: IT-ABBVIE-18K-083-2271174-00

PATIENT
  Sex: Male

DRUGS (1)
  1. DUODOPA [Suspect]
     Active Substance: CARBIDOPA\LEVODOPA
     Indication: PARKINSON^S DISEASE
     Dosage: MD 6+3??CR 4,3??ED 2,3
     Route: 050
     Dates: start: 20121210, end: 20180206

REACTIONS (3)
  - Fall [Fatal]
  - Cervical vertebral fracture [Fatal]
  - Chest injury [Fatal]
